FAERS Safety Report 24236790 (Version 1)
Quarter: 2024Q3

REPORT INFORMATION
  Report Type: Spontaneous
  Country: CA (occurrence: CA)
  Receive Date: 20240822
  Receipt Date: 20240822
  Transmission Date: 20241016
  Serious: Yes (Life-Threatening, Hospitalization)
  Sender: AMYLYX PHARMACEUTICALS
  Company Number: CA-AMX-008134

PATIENT
  Age: 66 Year
  Sex: Female

DRUGS (1)
  1. SODIUM PHENYLBUTYRATE\TAURURSODIOL [Suspect]
     Active Substance: SODIUM PHENYLBUTYRATE\TAURURSODIOL
     Indication: Amyotrophic lateral sclerosis
     Dosage: 1 SACHET ONCE DAILY FOR 3 WEEKS THEN 1 SACHET TWICE DAILY
     Route: 048

REACTIONS (3)
  - Diarrhoea haemorrhagic [Unknown]
  - Abdominal pain upper [Unknown]
  - Illness [Unknown]
